FAERS Safety Report 20098055 (Version 1)
Quarter: 2021Q4

REPORT INFORMATION
  Report Type: Spontaneous
  Country: CA (occurrence: CA)
  Receive Date: 20211122
  Receipt Date: 20211122
  Transmission Date: 20220303
  Serious: Yes (Life-Threatening, Other)
  Sender: FDA-Public Use
  Company Number: CA-DSPHARMA-2021SUN004393

PATIENT
  Age: 41 Year
  Sex: Female

DRUGS (1)
  1. LATUDA [Suspect]
     Active Substance: LURASIDONE HYDROCHLORIDE
     Indication: Bipolar disorder
     Dosage: 1.0 DF, QD (1 EVERY 1 DAYS)
     Route: 048

REACTIONS (1)
  - Breast cancer [Recovering/Resolving]
